FAERS Safety Report 24209220 (Version 1)
Quarter: 2024Q3

REPORT INFORMATION
  Report Type: Spontaneous
  Country: IT (occurrence: None)
  Receive Date: 20240814
  Receipt Date: 20240814
  Transmission Date: 20241017
  Serious: Yes (Death, Other)
  Sender: ASTRAZENECA
  Company Number: 2024A182426

PATIENT
  Sex: Male

DRUGS (1)
  1. DAPAGLIFLOZIN [Suspect]
     Active Substance: DAPAGLIFLOZIN
     Indication: Type 2 diabetes mellitus
     Route: 048

REACTIONS (2)
  - Death [Fatal]
  - Genitourinary tract infection [Unknown]
